FAERS Safety Report 12633403 (Version 2)
Quarter: 2016Q3

REPORT INFORMATION
  Report Type: Spontaneous
  Country: US (occurrence: US)
  Receive Date: 20160808
  Receipt Date: 20160808
  Transmission Date: 20161109
  Serious: No
  Sender: FDA-Public Use
  Company Number: US-BEH-2016060716

PATIENT
  Sex: Male
  Weight: 49 kg

DRUGS (8)
  1. ZYRTEC [Concomitant]
     Active Substance: CETIRIZINE HYDROCHLORIDE
  2. VERAMYST [Concomitant]
     Active Substance: FLUTICASONE FUROATE
  3. ALBUTEROL. [Concomitant]
     Active Substance: ALBUTEROL
  4. FOLIC ACID. [Concomitant]
     Active Substance: FOLIC ACID
  5. PULMICORT TURBUHALER [Concomitant]
     Active Substance: BUDESONIDE
  6. HIZENTRA [Suspect]
     Active Substance: HUMAN IMMUNOGLOBULIN G
     Indication: ACQUIRED IMMUNODEFICIENCY SYNDROME
     Route: 058
  7. EPIPEN [Concomitant]
     Active Substance: EPINEPHRINE
  8. COMPLETE MULTIVITAMIN [Concomitant]
     Active Substance: VITAMINS

REACTIONS (1)
  - Sinusitis [Unknown]
